FAERS Safety Report 24810392 (Version 1)
Quarter: 2025Q1

REPORT INFORMATION
  Report Type: Spontaneous
  Country: CN (occurrence: CN)
  Receive Date: 20250106
  Receipt Date: 20250106
  Transmission Date: 20250409
  Serious: Yes (Hospitalization, Other)
  Sender: PFIZER
  Company Number: CN-PFIZER INC-PV202400170535

PATIENT
  Age: 58 Year
  Sex: Female
  Weight: 59 kg

DRUGS (4)
  1. CYTARABINE [Suspect]
     Active Substance: CYTARABINE
     Indication: Acute myeloid leukaemia
     Dosage: 0.2 G, 1X/DAY
     Route: 041
     Dates: start: 20241217, end: 20241224
  2. DAUNORUBICIN HYDROCHLORIDE [Suspect]
     Active Substance: DAUNORUBICIN HYDROCHLORIDE
     Indication: Acute myeloid leukaemia
     Dosage: 100 MG, 1X/DAY
     Route: 041
     Dates: start: 20241217, end: 20241220
  3. SODIUM CHLORIDE [Concomitant]
     Active Substance: SODIUM CHLORIDE
     Indication: Vehicle solution use
     Dosage: 250 ML, 1X/DAY
     Route: 041
     Dates: start: 20241218, end: 20241220
  4. SODIUM CHLORIDE [Concomitant]
     Active Substance: SODIUM CHLORIDE
     Indication: Vehicle solution use
     Dosage: 500 ML, 1X/DAY
     Route: 041
     Dates: start: 20241218, end: 20241224

REACTIONS (2)
  - Myelosuppression [Not Recovered/Not Resolved]
  - Hyperpyrexia [Unknown]

NARRATIVE: CASE EVENT DATE: 20241224
